FAERS Safety Report 4627269-2 (Version None)
Quarter: 2005Q1

REPORT INFORMATION
  Report Type: 
  Country: None (occurrence: None)
  Receive Date: 20050331
  Receipt Date: 20050318
  Transmission Date: 20050727
  Serious: Yes (Life-Threatening)
  Sender: FDA-Public Use
  Company Number: JP-2005-004330

PATIENT
  Age: 73 Year
  Sex: Male

DRUGS (4)
  1. SOTALOL HCL [Suspect]
     Indication: ATRIAL FLUTTER
     Dosage: 40 MG, 2X/DAY, ORAL
     Route: 048
     Dates: start: 20040520
  2. VASOLAN [Concomitant]
  3. WARFARIN SODIUM [Concomitant]
  4. FLUTIDE (FLUTICASONE PROPIONATE) [Concomitant]

REACTIONS (1)
  - HYPERKALAEMIA [None]
